FAERS Safety Report 23759729 (Version 3)
Quarter: 2025Q3

REPORT INFORMATION
  Report Type: Report from Study
  Country: JP (occurrence: JP)
  Receive Date: 20240419
  Receipt Date: 20250813
  Transmission Date: 20251020
  Serious: Yes (Other)
  Sender: TAKEDA
  Company Number: JP-TAKEDA-2024TJP005590

PATIENT
  Age: 11 Year
  Sex: Female
  Weight: 49.2 kg

DRUGS (12)
  1. LISDEXAMFETAMINE DIMESYLATE [Suspect]
     Active Substance: LISDEXAMFETAMINE DIMESYLATE
     Indication: Attention deficit hyperactivity disorder
     Dosage: 20 MILLIGRAM, QD
     Dates: start: 20230320, end: 20230616
  2. LISDEXAMFETAMINE DIMESYLATE [Suspect]
     Active Substance: LISDEXAMFETAMINE DIMESYLATE
     Dosage: 30 MILLIGRAM, QD
     Dates: start: 20230617
  3. RISPERIDONE [Suspect]
     Active Substance: RISPERIDONE
     Indication: Autism spectrum disorder
  4. RISPERIDONE [Suspect]
     Active Substance: RISPERIDONE
     Dates: start: 20231214, end: 20240104
  5. RISPERIDONE [Suspect]
     Active Substance: RISPERIDONE
     Dates: start: 20240105, end: 20241024
  6. RISPERIDONE [Suspect]
     Active Substance: RISPERIDONE
  7. VALPROATE SODIUM [Concomitant]
     Active Substance: VALPROATE SODIUM
  8. RAMELTEON [Concomitant]
     Active Substance: RAMELTEON
  9. TOPIRAMATE [Concomitant]
     Active Substance: TOPIRAMATE
     Dates: start: 20240206, end: 20241212
  10. TOPIRAMATE [Concomitant]
     Active Substance: TOPIRAMATE
     Dates: start: 20241213, end: 20250130
  11. TOPIRAMATE [Concomitant]
     Active Substance: TOPIRAMATE
     Dates: start: 20250131, end: 20250227
  12. TOPIRAMATE [Concomitant]
     Active Substance: TOPIRAMATE

REACTIONS (2)
  - Autism spectrum disorder [Recovering/Resolving]
  - Increased appetite [Recovering/Resolving]

NARRATIVE: CASE EVENT DATE: 20240101
